FAERS Safety Report 8722754 (Version 2)
Quarter: 2015Q3

REPORT INFORMATION
  Report Type: Report from Study
  Country: US (occurrence: US)
  Receive Date: 20120814
  Receipt Date: 20150708
  Transmission Date: 20151125
  Serious: Yes (Death, Hospitalization)
  Sender: FDA-Public Use
  Company Number: US-ROCHE-1100486

PATIENT
  Sex: Female

DRUGS (13)
  1. DEXTROSE IN LACTATED RINGER^S [Concomitant]
     Route: 065
  2. HEPARIN [Concomitant]
     Active Substance: HEPARIN SODIUM
     Dosage: 100 U 1 ML
     Route: 065
     Dates: start: 19910117
  3. DOBUTREX [Concomitant]
     Active Substance: DOBUTAMINE HYDROCHLORIDE
     Route: 065
  4. ACTIVASE [Suspect]
     Active Substance: ALTEPLASE
     Indication: ARTERIOSCLEROSIS CORONARY ARTERY
     Route: 065
     Dates: start: 19910117
  5. SODIUM CHLORIDE. [Concomitant]
     Active Substance: SODIUM CHLORIDE
     Route: 042
     Dates: start: 19910117
  6. CALCIUM CHLORIDE. [Concomitant]
     Active Substance: CALCIUM CHLORIDE
     Route: 065
     Dates: start: 19910117
  7. LIDOCAINE. [Concomitant]
     Active Substance: LIDOCAINE
     Route: 065
     Dates: start: 19910117
  8. PLASMALYTE A [Concomitant]
     Route: 065
     Dates: start: 19910117
  9. DOBUTREX [Concomitant]
     Active Substance: DOBUTAMINE HYDROCHLORIDE
     Dosage: 47.50
     Route: 065
     Dates: start: 19910117
  10. DOPAMINE [Concomitant]
     Active Substance: DOPAMINE\DOPAMINE HYDROCHLORIDE
     Route: 065
     Dates: start: 19910117
  11. ISUPREL [Concomitant]
     Active Substance: ISOPROTERENOL HYDROCHLORIDE
     Dosage: 0.2 MG/ML
     Route: 042
     Dates: start: 19910117
  12. EPINEPHRINE. [Concomitant]
     Active Substance: EPINEPHRINE
     Route: 065
     Dates: start: 19910117
  13. DEXTROSE. [Concomitant]
     Active Substance: DEXTROSE
     Route: 065
     Dates: start: 19910117

REACTIONS (3)
  - Respiratory arrest [Unknown]
  - Cardiogenic shock [Unknown]
  - Death [Fatal]
